FAERS Safety Report 6109078-0 (Version None)
Quarter: 2009Q1

REPORT INFORMATION
  Report Type: 
  Country: None (occurrence: None)
  Receive Date: 20090310
  Receipt Date: 20090226
  Transmission Date: 20090719
  Serious: Yes (Hospitalization)
  Sender: FDA-Public Use
  Company Number: US-ELI_LILLY_AND_COMPANY-US200903000143

PATIENT
  Sex: Female

DRUGS (2)
  1. FORTEO [Suspect]
     Dates: start: 20070101
  2. FORTEO [Suspect]
     Dosage: UNK, QOD
     Dates: start: 20090211

REACTIONS (5)
  - COUGH [None]
  - FALL [None]
  - LUMBAR VERTEBRAL FRACTURE [None]
  - PAIN [None]
  - RHINORRHOEA [None]
